FAERS Safety Report 19645808 (Version 1)
Quarter: 2021Q3

REPORT INFORMATION
  Report Type: Spontaneous
  Country: IE (occurrence: IE)
  Receive Date: 20210802
  Receipt Date: 20210802
  Transmission Date: 20211014
  Serious: Yes (Hospitalization, Other)
  Sender: FDA-Public Use
  Company Number: None

PATIENT
  Age: 29 Year
  Sex: Female

DRUGS (1)
  1. ROACCUTANE [Suspect]
     Active Substance: ISOTRETINOIN
     Indication: ACNE

REACTIONS (8)
  - Self-injurious ideation [None]
  - Impaired quality of life [None]
  - Drug-induced liver injury [None]
  - Depression [None]
  - Scar [None]
  - Mental disorder [None]
  - Gastrointestinal disorder [None]
  - Suicidal ideation [None]

NARRATIVE: CASE EVENT DATE: 20111231
